FAERS Safety Report 19941131 (Version 4)
Quarter: 2022Q1

REPORT INFORMATION
  Report Type: Report from Study
  Country: US (occurrence: US)
  Receive Date: 20211011
  Receipt Date: 20220117
  Transmission Date: 20220423
  Serious: Yes (Hospitalization)
  Sender: FDA-Public Use
  Company Number: US-BIOGEN-2021BI00982508

PATIENT
  Sex: Male

DRUGS (1)
  1. TYSABRI [Suspect]
     Active Substance: NATALIZUMAB
     Indication: Multiple sclerosis
     Route: 065
     Dates: start: 20070313

REACTIONS (4)
  - COVID-19 [Unknown]
  - Infection [Recovered/Resolved]
  - Cardiomyopathy [Unknown]
  - Device dislocation [Unknown]

NARRATIVE: CASE EVENT DATE: 20210101
